FAERS Safety Report 24176718 (Version 1)
Quarter: 2024Q3

REPORT INFORMATION
  Report Type: Report from Study
  Country: US (occurrence: US)
  Receive Date: 20240806
  Receipt Date: 20240806
  Transmission Date: 20241016
  Serious: Yes (Hospitalization)
  Sender: ABBVIE
  Company Number: US-ABBVIE-5865262

PATIENT
  Sex: Female

DRUGS (1)
  1. HUMIRA [Suspect]
     Active Substance: ADALIMUMAB
     Indication: Rheumatoid arthritis
     Route: 058
     Dates: start: 20240622, end: 20240725

REACTIONS (3)
  - Acute kidney injury [Recovering/Resolving]
  - Dyspnoea [Recovering/Resolving]
  - Renal impairment [Unknown]

NARRATIVE: CASE EVENT DATE: 20240101
